FAERS Safety Report 18435078 (Version 1)
Quarter: 2020Q4

REPORT INFORMATION
  Report Type: Spontaneous
  Country: US (occurrence: US)
  Receive Date: 20201027
  Receipt Date: 20201027
  Transmission Date: 20210114
  Serious: No
  Sender: FDA-Public Use
  Company Number: US-ELI_LILLY_AND_COMPANY-US202009013748

PATIENT
  Age: 60 Year
  Sex: Female

DRUGS (3)
  1. EMGALITY [Suspect]
     Active Substance: GALCANEZUMAB-GNLM
     Indication: MIGRAINE
     Dosage: 120 MG, UNKNOWN
     Route: 058
  2. NORTRIPTYLINE [Concomitant]
     Active Substance: NORTRIPTYLINE
     Indication: MIGRAINE PROPHYLAXIS
     Dosage: 50 MG, UNKNOWN
     Route: 065
  3. BOTOX [Concomitant]
     Active Substance: ONABOTULINUMTOXINA
     Indication: MIGRAINE PROPHYLAXIS
     Dosage: UNK, UNKNOWN
     Route: 065

REACTIONS (3)
  - Pruritus [Not Recovered/Not Resolved]
  - Inappropriate schedule of product administration [Unknown]
  - Eye swelling [Not Recovered/Not Resolved]

NARRATIVE: CASE EVENT DATE: 20200927
